FAERS Safety Report 9840550 (Version 3)
Quarter: 2014Q1

REPORT INFORMATION
  Report Type: Spontaneous
  Country: JP (occurrence: JP)
  Receive Date: 20140124
  Receipt Date: 20140224
  Transmission Date: 20141002
  Serious: Yes (Hospitalization)
  Sender: FDA-Public Use
  Company Number: JP-EISAI INC-E7389-04448-SPO-JP

PATIENT
  Age: 63 Year
  Sex: Female

DRUGS (3)
  1. HALAVEN [Suspect]
     Indication: BREAST CANCER RECURRENT
     Dosage: 1.4 MG/M2
     Route: 041
     Dates: start: 20131112, end: 201312
  2. HALAVEN [Suspect]
     Dosage: 1.1 MG/M2
     Route: 041
     Dates: start: 20131210
  3. FEBURIC (FEBUXOSTAT) [Concomitant]
     Indication: HYPERURICAEMIA
     Dosage: UNKNOWN
     Route: 048
     Dates: start: 20140105

REACTIONS (2)
  - Cardiac failure [Recovering/Resolving]
  - Neutropenia [Recovered/Resolved]
